FAERS Safety Report 9517468 (Version 3)
Quarter: 2014Q1

REPORT INFORMATION
  Report Type: Spontaneous
  Country: BR (occurrence: BR)
  Receive Date: 20130911
  Receipt Date: 20140129
  Transmission Date: 20141002
  Serious: Yes (Hospitalization)
  Sender: FDA-Public Use
  Company Number: BR-ROCHE-1272468

PATIENT
  Age: 60 Year
  Sex: Female
  Weight: 50 kg

DRUGS (5)
  1. RIVOTRIL [Suspect]
     Indication: EPILEPSY
     Route: 048
  2. TRILEPTAL [Suspect]
     Indication: PRODUCT USED FOR UNKNOWN INDICATION
     Route: 065
  3. CLONAZEPAM [Suspect]
     Indication: PRODUCT USED FOR UNKNOWN INDICATION
     Route: 065
  4. DEPURA [Concomitant]
     Indication: OSTEOPOROSIS PROPHYLAXIS
     Dosage: 10 DROP
     Route: 065
  5. SABRIL [Concomitant]

REACTIONS (10)
  - Metabolic disorder [Unknown]
  - Memory impairment [Not Recovered/Not Resolved]
  - Motor dysfunction [Recovering/Resolving]
  - Fall [Unknown]
  - Dizziness [Unknown]
  - Head injury [Recovered/Resolved]
  - Urinary tract infection [Recovered/Resolved]
  - Drug ineffective [Unknown]
  - Anaemia [Not Recovered/Not Resolved]
  - Animal bite [Unknown]
